FAERS Safety Report 5379889-8 (Version None)
Quarter: 2007Q3

REPORT INFORMATION
  Report Type: 
  Country: None (occurrence: None)
  Receive Date: 20070706
  Receipt Date: 20070704
  Transmission Date: 20080115
  Serious: Yes (Death, Other)
  Sender: FDA-Public Use
  Company Number: PHBS2007JP08568

PATIENT
  Age: 15 Year
  Sex: Male

DRUGS (6)
  1. SANDIMMUNE [Suspect]
     Indication: CORD BLOOD TRANSPLANT THERAPY
     Route: 042
  2. PREDNISOLONE [Suspect]
     Indication: CORD BLOOD TRANSPLANT THERAPY
     Dosage: 0.5 MG/KD/DAY
     Route: 042
     Dates: start: 20050216
  3. PREDNISOLONE [Suspect]
     Dosage: 1 MG/KG/DAY
     Route: 042
  4. BUSULFAN [Concomitant]
     Dosage: 16 MG/KG
  5. L-PAM [Concomitant]
  6. CIDOFOVIR [Suspect]
     Route: 042
     Dates: start: 20050422, end: 20050426

REACTIONS (7)
  - ADENOVIRUS INFECTION [None]
  - CONVULSION [None]
  - DEPRESSED LEVEL OF CONSCIOUSNESS [None]
  - GRAFT VERSUS HOST DISEASE [None]
  - NEUROLOGICAL SYMPTOM [None]
  - PAIN IN EXTREMITY [None]
  - RENAL FAILURE ACUTE [None]
